FAERS Safety Report 13779298 (Version 2)
Quarter: 2018Q1

REPORT INFORMATION
  Report Type: Spontaneous
  Country: PL (occurrence: PL)
  Receive Date: 20170721
  Receipt Date: 20180209
  Transmission Date: 20180508
  Serious: Yes (Hospitalization, Other)
  Sender: FDA-Public Use
  Company Number: PL-IMPAX LABORATORIES, INC-2017-IPXL-02149

PATIENT
  Age: 58 Year
  Sex: Female

DRUGS (1)
  1. ADRENACLICK [Suspect]
     Active Substance: EPINEPHRINE
     Indication: CARDIAC ARREST
     Dosage: 1 MG, INJECTION
     Route: 042

REACTIONS (1)
  - Stress cardiomyopathy [Recovered/Resolved]
